FAERS Safety Report 12681984 (Version 2)
Quarter: 2016Q3

REPORT INFORMATION
  Report Type: Spontaneous
  Country: US (occurrence: US)
  Receive Date: 20160824
  Receipt Date: 20160825
  Transmission Date: 20161109
  Serious: Yes (Other)
  Sender: FDA-Public Use
  Company Number: US-JNJFOC-20160814519

PATIENT

DRUGS (2)
  1. REOPRO [Suspect]
     Active Substance: ABCIXIMAB
     Indication: STENT PLACEMENT
     Route: 013
  2. REOPRO [Suspect]
     Active Substance: ABCIXIMAB
     Indication: STENT PLACEMENT
     Route: 042

REACTIONS (5)
  - Embolism [Unknown]
  - Haemorrhagic disorder [Unknown]
  - Off label use [Unknown]
  - Product use issue [Unknown]
  - Nervous system disorder [Unknown]
